FAERS Safety Report 16423121 (Version 1)
Quarter: 2019Q2

REPORT INFORMATION
  Report Type: Spontaneous
  Country: US (occurrence: US)
  Receive Date: 20190612
  Receipt Date: 20190612
  Transmission Date: 20190711
  Serious: No
  Sender: FDA-Public Use
  Company Number: US-COVIS PHARMA B.V.-2018COV03725

PATIENT
  Sex: Male
  Weight: 73.47 kg

DRUGS (7)
  1. OMEPRAZOLE MAGNESIUM. [Suspect]
     Active Substance: OMEPRAZOLE MAGNESIUM
     Indication: OESOPHAGEAL DISORDER
     Route: 048
  2. LEVOTHYROXINE. [Concomitant]
     Active Substance: LEVOTHYROXINE
  3. LISINOPRIL. [Concomitant]
     Active Substance: LISINOPRIL
  4. ATENOLOL. [Suspect]
     Active Substance: ATENOLOL
     Indication: CARDIAC DISORDER
  5. LIPITOR [Suspect]
     Active Substance: ATORVASTATIN CALCIUM
     Indication: BLOOD CHOLESTEROL
     Dosage: 40 MG
     Route: 048
     Dates: start: 1965
  6. ASPIRIN. [Concomitant]
     Active Substance: ASPIRIN
  7. TRIAMTERENE AND HYDROCHLOROTHIAZIDE (HARRIS) [Concomitant]
     Indication: DIURETIC THERAPY

REACTIONS (5)
  - Body height decreased [Unknown]
  - Dysphonia [Not Recovered/Not Resolved]
  - Oesophageal disorder [Unknown]
  - Hypoacusis [Unknown]
  - Blood cholesterol abnormal [Not Recovered/Not Resolved]
